FAERS Safety Report 7750972-2 (Version None)
Quarter: 2011Q3

REPORT INFORMATION
  Report Type: 
  Country: None (occurrence: None)
  Receive Date: 20110912
  Receipt Date: 20110901
  Transmission Date: 20111222
  Serious: Yes (Hospitalization)
  Sender: FDA-Public Use
  Company Number: 998695

PATIENT
  Age: 59 Year
  Sex: Female

DRUGS (3)
  1. FENTANYL CITRATE [Concomitant]
  2. VERSED [Concomitant]
  3. DEXTROSE 5% AND SODIUM CHLORIDE 0.45% [Suspect]
     Indication: OESOPHAGOGASTRODUODENOSCOPY
     Dosage: TKO, RATE, INTRAVENOUS DRIP
     Route: 041
     Dates: start: 20110726

REACTIONS (4)
  - PRODUCT CONTAMINATION [None]
  - CHILLS [None]
  - PYREXIA [None]
  - INFECTION [None]
